FAERS Safety Report 8738510 (Version 8)
Quarter: 2014Q2

REPORT INFORMATION
  Report Type: Spontaneous
  Country: US (occurrence: US)
  Receive Date: 20120823
  Receipt Date: 20140606
  Transmission Date: 20141212
  Serious: Yes (Hospitalization, Other)
  Sender: FDA-Public Use
  Company Number: US-MERCK-1208USA005008

PATIENT
  Sex: Female
  Weight: 76.64 kg

DRUGS (7)
  1. FOSAMAX [Suspect]
     Indication: OSTEOPOROSIS
     Dosage: 10 MG, QD
     Route: 048
     Dates: start: 19970701, end: 20010202
  2. FOSAMAX [Suspect]
     Dosage: 70 MG, QW
     Route: 048
     Dates: start: 20010202, end: 200706
  3. DYAZIDE [Concomitant]
     Indication: BLOOD PRESSURE MANAGEMENT
     Dosage: UNK
     Dates: start: 19931231, end: 199909
  4. ACCUPRIL [Concomitant]
     Indication: BLOOD PRESSURE MANAGEMENT
     Dosage: 10 MG, UNK
     Dates: start: 19980803, end: 20051231
  5. QUINAPRIL HYDROCHLORIDE [Concomitant]
     Indication: BLOOD PRESSURE MANAGEMENT
     Dosage: 10 MG, UNK
     Dates: start: 20070115, end: 20090821
  6. HYDROCHLOROTHIAZIDE (+) TRIAMTERENE [Concomitant]
     Indication: BLOOD PRESSURE MANAGEMENT
     Dosage: 37.5/25 UNK, UNK
     Dates: start: 199902, end: 20080117
  7. CALCIUM (UNSPECIFIED) [Concomitant]
     Indication: OSTEOPOROSIS

REACTIONS (36)
  - Femur fracture [Unknown]
  - Intramedullary rod insertion [Unknown]
  - Femur fracture [Unknown]
  - Medical device removal [Unknown]
  - Intramedullary rod insertion [Unknown]
  - Colon cancer [Unknown]
  - Colectomy [Unknown]
  - Anaemia [Unknown]
  - Thrombosis prophylaxis [Unknown]
  - Purpura [Unknown]
  - Urine analysis abnormal [Unknown]
  - Renal failure [Unknown]
  - Bacterial test [Unknown]
  - Vitamin D deficiency [Unknown]
  - Calcium deficiency [Unknown]
  - Osteoarthritis [Unknown]
  - Chronic sinusitis [Unknown]
  - Hyperlipidaemia [Unknown]
  - Hyperthyroidism [Unknown]
  - Seborrhoeic keratosis [Unknown]
  - Iron deficiency anaemia [Unknown]
  - Cataract operation [Unknown]
  - Renal stone removal [Unknown]
  - Anastomotic ulcer [Unknown]
  - Haemorrhoids [Unknown]
  - Eye disorder [Unknown]
  - Osteopenia [Unknown]
  - Impaired healing [Recovered/Resolved]
  - Bursitis [Unknown]
  - Medical device pain [Unknown]
  - Renal stone removal [Unknown]
  - Nephrolithiasis [Unknown]
  - Arthropathy [Unknown]
  - Vertigo [Unknown]
  - Arthralgia [Unknown]
  - Metatarsalgia [Not Recovered/Not Resolved]
